FAERS Safety Report 7591086-4 (Version None)
Quarter: 2011Q3

REPORT INFORMATION
  Report Type: 
  Country: None (occurrence: None)
  Receive Date: 20110705
  Receipt Date: 20110622
  Transmission Date: 20111222
  Serious: Yes (Hospitalization)
  Sender: FDA-Public Use
  Company Number: ES-CELGENEUS-144-50794-11053473

PATIENT
  Sex: Male

DRUGS (5)
  1. VIDAZA [Suspect]
     Indication: MYELODYSPLASTIC SYNDROME
     Route: 051
     Dates: start: 20100901
  2. VIDAZA [Suspect]
     Route: 051
     Dates: start: 20110201, end: 20110401
  3. DACORTIN [Concomitant]
     Route: 065
  4. EXJADE [Concomitant]
     Indication: IRON OVERLOAD
     Route: 065
     Dates: start: 20110301
  5. FILGRASTIM [Concomitant]
     Indication: NEUTROPENIA
     Dosage: 85.7143 MICROGRAM
     Route: 065
     Dates: start: 20100901

REACTIONS (1)
  - DIFFUSE LARGE B-CELL LYMPHOMA [None]
